FAERS Safety Report 8818091 (Version 1)
Quarter: 2012Q4

REPORT INFORMATION
  Report Type: 
  Country: FR (occurrence: FR)
  Receive Date: 20121001
  Receipt Date: 20121001
  Transmission Date: 20130627
  Serious: Yes (Hospitalization, Other)
  Sender: FDA-Public Use
  Company Number: FR-009507513-1102FRA00059

PATIENT
  Age: 77 None
  Sex: Female
  Weight: 61 kg

DRUGS (5)
  1. JANUVIA [Suspect]
     Indication: TYPE 2 DIABETES MELLITUS
     Dosage: 100 mg, qd
     Route: 048
     Dates: start: 20101027, end: 20110131
  2. STAGID [Suspect]
     Indication: TYPE 2 DIABETES MELLITUS
     Route: 048
     Dates: start: 2009, end: 201111
  3. DIASTABOL [Suspect]
     Route: 048
     Dates: start: 2008, end: 201111
  4. HYTACAND [Suspect]
     Indication: HYPERTENSION
     Route: 048
     Dates: start: 2008, end: 201111
  5. PRAVASTATIN SODIUM [Suspect]
     Indication: DYSLIPIDAEMIA
     Route: 048
     Dates: start: 2008, end: 20111117

REACTIONS (7)
  - Hepatic cirrhosis [Recovering/Resolving]
  - Hepatitis [Recovering/Resolving]
  - Autoimmune hepatitis [Recovering/Resolving]
  - Alanine aminotransferase increased [Recovering/Resolving]
  - Aspartate aminotransferase increased [Recovering/Resolving]
  - Gamma-glutamyltransferase increased [Recovering/Resolving]
  - Blood bilirubin increased [Recovering/Resolving]
